FAERS Safety Report 18466697 (Version 1)
Quarter: 2020Q4

REPORT INFORMATION
  Report Type: Spontaneous
  Country: PL (occurrence: PL)
  Receive Date: 20201104
  Receipt Date: 20201104
  Transmission Date: 20210114
  Serious: Yes (Death, Life-Threatening)
  Sender: FDA-Public Use
  Company Number: PL-ABBVIE-20K-129-3591990-00

PATIENT
  Weight: 45 kg

DRUGS (3)
  1. VENCLYXTO [Suspect]
     Active Substance: VENETOCLAX
     Indication: CHRONIC LYMPHOCYTIC LEUKAEMIA
     Dosage: DOSE REDUCED TO 100 MG
     Route: 048
  2. VENCLYXTO [Suspect]
     Active Substance: VENETOCLAX
     Route: 048
     Dates: end: 202007
  3. GRANULOCYTE COLONY STIMULATING FACTOR [Concomitant]
     Active Substance: GRANULOCYTE COLONY-STIMULATING FACTOR NOS
     Indication: NEUTROPENIA

REACTIONS (4)
  - Upper respiratory tract infection [Unknown]
  - Enteritis [Unknown]
  - Neutropenia [Unknown]
  - Pneumonia [Fatal]

NARRATIVE: CASE EVENT DATE: 202008
